FAERS Safety Report 6176853-6 (Version None)
Quarter: 2009Q2

REPORT INFORMATION
  Report Type: 
  Country: None (occurrence: None)
  Receive Date: 20090501
  Receipt Date: 20090424
  Transmission Date: 20091009
  Serious: Yes (Other)
  Sender: FDA-Public Use
  Company Number: PHEH2007US13325

PATIENT
  Sex: Female

DRUGS (8)
  1. ZOMETA [Suspect]
  2. AREDIA [Suspect]
     Dosage: UNK
  3. HERCEPTIN [Concomitant]
  4. AROMASIN [Concomitant]
  5. CEFZIL [Concomitant]
  6. LISINOPRIL [Concomitant]
     Dosage: 10 MG, QD
  7. LORAZEPAM [Concomitant]
     Dosage: 5 MG, PRN
  8. ZOCOR [Concomitant]
     Dosage: 40 MG, QD

REACTIONS (5)
  - DEFORMITY [None]
  - INFECTION [None]
  - OSTEONECROSIS [None]
  - PAIN [None]
  - PATELLOFEMORAL PAIN SYNDROME [None]
